FAERS Safety Report 19591905 (Version 3)
Quarter: 2021Q3

REPORT INFORMATION
  Report Type: Report from Study
  Country: US (occurrence: US)
  Receive Date: 20210721
  Receipt Date: 20210928
  Transmission Date: 20211014
  Serious: No
  Sender: FDA-Public Use
  Company Number: NVSC2021US156577

PATIENT
  Age: 87 Year
  Sex: Female

DRUGS (2)
  1. ENTRESTO [Suspect]
     Active Substance: SACUBITRIL\VALSARTAN
     Indication: PRODUCT USED FOR UNKNOWN INDICATION
     Dosage: UNK, BID
     Route: 048
     Dates: start: 2018
  2. COUMADIN [Concomitant]
     Active Substance: WARFARIN SODIUM
     Indication: PRODUCT USED FOR UNKNOWN INDICATION
     Route: 065

REACTIONS (9)
  - COVID-19 [Unknown]
  - Joint swelling [Recovered/Resolved]
  - Gait disturbance [Unknown]
  - Contusion [Unknown]
  - Product dose omission issue [Unknown]
  - Weight increased [Unknown]
  - Decreased activity [Unknown]
  - Hypoacusis [Unknown]
  - Oedema peripheral [Recovered/Resolved]
